FAERS Safety Report 8733727 (Version 2)
Quarter: 2014Q2

REPORT INFORMATION
  Report Type: Spontaneous
  Country: US (occurrence: US)
  Receive Date: 20120821
  Receipt Date: 20140404
  Transmission Date: 20141212
  Serious: Yes (Other)
  Sender: FDA-Public Use
  Company Number: US-BAYER-2012-083150

PATIENT
  Age: 33 Year
  Sex: Female

DRUGS (10)
  1. YAZ [Suspect]
     Indication: ACNE
     Dosage: UNK
     Dates: start: 200808
  2. CYMBALTA [Concomitant]
     Dosage: 60 MG, UNK
     Dates: start: 20081219, end: 20090516
  3. RHINOCORT AQUA [Concomitant]
     Dosage: 8.60 G, UNK
  4. PROMETHAZINE DM [Concomitant]
     Dosage: 100 ML, UNK
  5. LEVAQUIN [Concomitant]
     Dosage: 500 MG, UNK
  6. PREVACID [Concomitant]
     Dosage: 30 MG, UNK
  7. CIPROFLOXACIN [Concomitant]
     Dosage: 500
  8. OMEPRAZOLE [Concomitant]
     Dosage: 20 MG, UNK
     Dates: start: 20090605, end: 20090904
  9. ALPRAZOLAM [Concomitant]
     Dosage: 0.5 MG, UNK
     Dates: start: 20081219, end: 20100106
  10. PRILOSEC [Concomitant]
     Dosage: UNK
     Dates: start: 20090715

REACTIONS (5)
  - Injury [None]
  - Biliary dyskinesia [None]
  - Cholecystitis chronic [None]
  - Pain [None]
  - Pain [None]
